FAERS Safety Report 13880496 (Version 4)
Quarter: 2017Q3

REPORT INFORMATION
  Report Type: Spontaneous
  Country: JP (occurrence: JP)
  Receive Date: 20170818
  Receipt Date: 20170913
  Transmission Date: 20171127
  Serious: Yes (Hospitalization, Disabling, Other)
  Sender: FDA-Public Use
  Company Number: JP-PFIZER INC-2017357455

PATIENT
  Age: 9 Decade
  Sex: Female
  Weight: 60 kg

DRUGS (18)
  1. CELECOX [Suspect]
     Active Substance: CELECOXIB
     Indication: SPINAL COLUMN STENOSIS
     Dosage: 100 MG, 2X/DAY
     Route: 048
     Dates: end: 20170704
  2. FLUNITRAZEPAM [Suspect]
     Active Substance: FLUNITRAZEPAM
     Indication: INSOMNIA
     Dosage: 1 MG, 1X/DAY
     Route: 048
     Dates: end: 20170711
  3. FAMOTIDINE. [Suspect]
     Active Substance: FAMOTIDINE
     Indication: PROPHYLAXIS AGAINST GASTROINTESTINAL ULCER
     Dosage: 20 MG, 1X/DAY
     Route: 048
  4. NEUROTROPIN /00398601/ [Suspect]
     Active Substance: CYANOCOBALAMIN\LIDOCAINE HYDROCHLORIDE\PYRIDOXINE HYDROCHLORIDE\THIAMINE HYDROCHLORIDE
     Indication: NECK PAIN
  5. LIMAPROST [Suspect]
     Active Substance: LIMAPROST
     Indication: SPINAL COLUMN STENOSIS
     Dosage: 1 TABLET, THRICE DAILY
     Route: 048
     Dates: end: 20170711
  6. VOLTAREN [Suspect]
     Active Substance: DICLOFENAC SODIUM
     Indication: BACK PAIN
     Dosage: 25 MG, WHEN IN PAIN
     Route: 065
     Dates: start: 20170605, end: 20170704
  7. CRESTOR [Suspect]
     Active Substance: ROSUVASTATIN CALCIUM
     Indication: DYSLIPIDAEMIA
     Dosage: 2.5 MG, 1X/DAY
     Route: 048
     Dates: end: 20170704
  8. ETIZOLAM [Suspect]
     Active Substance: ETIZOLAM
     Indication: INSOMNIA
     Dosage: 1 MG, 1X/DAY
     Route: 048
     Dates: end: 20170704
  9. ALDIOXA [Suspect]
     Active Substance: ALDIOXA
     Indication: PROPHYLAXIS AGAINST GASTROINTESTINAL ULCER
     Dosage: 100 MG, 1X/DAY
     Route: 048
     Dates: end: 20170704
  10. RINLAXER [Suspect]
     Active Substance: CHLORPHENESIN CARBAMATE
     Indication: ANALGESIC THERAPY
     Dosage: 1 TABLET, THRICE DAILY
     Route: 048
     Dates: start: 20170623, end: 20170704
  11. XYLOCAINE [Suspect]
     Active Substance: LIDOCAINE HYDROCHLORIDE
     Indication: BACK PAIN
     Dosage: 5 ML, MONTHLY
     Route: 058
     Dates: start: 20170130
  12. NEUROTROPIN /00398601/ [Suspect]
     Active Substance: CYANOCOBALAMIN\LIDOCAINE HYDROCHLORIDE\PYRIDOXINE HYDROCHLORIDE\THIAMINE HYDROCHLORIDE
     Indication: BACK PAIN
     Dosage: 3.6 IU, MONTHLY
     Route: 058
     Dates: start: 20170130
  13. CRAVIT [Suspect]
     Active Substance: LEVOFLOXACIN
     Indication: CYSTITIS
     Dosage: 500 MG, 1X/DAY
     Route: 048
     Dates: start: 20170518, end: 20170523
  14. XYLOCAINE [Suspect]
     Active Substance: LIDOCAINE HYDROCHLORIDE
     Indication: NECK PAIN
  15. METHYCOBAL [Suspect]
     Active Substance: METHYLCOBALAMIN
     Indication: VITAMIN B12 DEFICIENCY
     Dosage: 500 UG, 3X/DAY
     Route: 048
     Dates: start: 20170619
  16. DIPYRIDAMOLE. [Suspect]
     Active Substance: DIPYRIDAMOLE
     Indication: SPINAL COLUMN STENOSIS
     Dosage: 25 MG, 2X/DAY
     Route: 048
     Dates: end: 20170704
  17. BETANIS [Suspect]
     Active Substance: MIRABEGRON
     Indication: HYPERTONIC BLADDER
     Dosage: 50 MG, 1X/DAY
     Route: 048
     Dates: start: 20161104, end: 20161215
  18. BETANIS [Suspect]
     Active Substance: MIRABEGRON
     Dosage: 50 MG, 1X/DAY
     Route: 048
     Dates: start: 20170216, end: 20170704

REACTIONS (12)
  - Back pain [Recovered/Resolved]
  - Tubulointerstitial nephritis [Recovering/Resolving]
  - Antineutrophil cytoplasmic antibody increased [Recovering/Resolving]
  - Drug-induced liver injury [Recovered/Resolved]
  - Neck pain [Recovered/Resolved]
  - Off label use [Unknown]
  - C-reactive protein increased [Recovering/Resolving]
  - Pyrexia [Recovered/Resolved]
  - Gait disturbance [Recovered/Resolved]
  - Cystitis [Recovered/Resolved]
  - Condition aggravated [Recovered/Resolved]
  - White blood cell count increased [Recovering/Resolving]

NARRATIVE: CASE EVENT DATE: 20170510
